FAERS Safety Report 4619944-0 (Version None)
Quarter: 2005Q1

REPORT INFORMATION
  Report Type: 
  Country: None (occurrence: None)
  Receive Date: 20050328
  Receipt Date: 20050205
  Transmission Date: 20050727
  Serious: Yes (Hospitalization)
  Sender: FDA-Public Use
  Company Number: DE-ABBOTT-05P-062-0290030-00

PATIENT
  Age: 24 Year
  Sex: Male
  Weight: 100 kg

DRUGS (4)
  1. AKINETON [Suspect]
     Indication: SUICIDE ATTEMPT
     Route: 048
     Dates: start: 20050205, end: 20050205
  2. ERGENYL [Suspect]
     Indication: SUICIDE ATTEMPT
     Route: 048
     Dates: start: 20050205, end: 20050205
  3. RISPERIDONE [Suspect]
     Indication: SUICIDE ATTEMPT
     Route: 048
     Dates: start: 20050205, end: 20050205
  4. HASHISH [Suspect]
     Indication: SUICIDE ATTEMPT
     Dates: start: 20050205, end: 20050205

REACTIONS (3)
  - FATIGUE [None]
  - SUICIDE ATTEMPT [None]
  - UNEVALUABLE EVENT [None]
